FAERS Safety Report 5242027-6 (Version None)
Quarter: 2007Q1

REPORT INFORMATION
  Report Type: 
  Country: None (occurrence: None)
  Receive Date: 20070220
  Receipt Date: 20070213
  Transmission Date: 20070707
  Serious: Yes (Other)
  Sender: FDA-Public Use
  Company Number: US-PFIZER INC-2006131276

PATIENT

DRUGS (1)
  1. SOLU-MEDROL [Suspect]

REACTIONS (3)
  - ANGIOEDEMA [None]
  - HYPERTENSION [None]
  - PRURITUS [None]
